FAERS Safety Report 10121122 (Version 2)
Quarter: 2014Q2

REPORT INFORMATION
  Report Type: Other
  Country: US (occurrence: US)
  Receive Date: 20140425
  Receipt Date: 20140624
  Transmission Date: 20141212
  Serious: Yes (Hospitalization, Other)
  Sender: FDA-Public Use
  Company Number: US-GSKPPD-2014GSK002471

PATIENT
  Age: 52 Year
  Sex: Female
  Weight: 94.43 kg

DRUGS (7)
  1. AVANDIA [Suspect]
     Indication: DIABETES MELLITUS
     Dosage: DATES OF AVANDIA USE COULD NOT BE CONFIRMED IN RECORDS REVIEWED
     Route: 048
  2. AVANDAMET [Suspect]
     Indication: DIABETES MELLITUS
     Dosage: 4MG/500 MG?DATES OF AVANDAMET USE COULD NOT BE CONFIRMED IN RECORDS REVIEWED.
     Route: 048
  3. LISINOPRIL [Concomitant]
     Route: 048
  4. ISOSORBIDE [Concomitant]
     Route: 048
  5. VERAPAMIL [Concomitant]
     Route: 048
  6. CRESTOR [Concomitant]
     Route: 048
  7. CARVEDILOL [Concomitant]
     Route: 048

REACTIONS (1)
  - Angina pectoris [Recovered/Resolved]
